FAERS Safety Report 17645870 (Version 9)
Quarter: 2020Q4

REPORT INFORMATION
  Report Type: Report from Study
  Country: None (occurrence: BE)
  Receive Date: 20200408
  Receipt Date: 20201103
  Transmission Date: 20210113
  Serious: Yes (Death, Hospitalization, Other)
  Sender: FDA-Public Use
  Company Number: BE-ABBVIE-19S-013-2641050-00

PATIENT
  Age: 75 Year
  Sex: Female
  Weight: 71.73 kg

DRUGS (12)
  1. DUODOPA [Suspect]
     Active Substance: CARBIDOPA\LEVODOPA
     Dosage: MD=4ML, CD=2.1ML/HR DURING 16HRS, ED=0.8ML
     Route: 050
     Dates: start: 20191205, end: 20200409
  2. DUODOPA [Suspect]
     Active Substance: CARBIDOPA\LEVODOPA
     Dosage: DOSES CONTINUOUSLY MONITORED AND ADAPTED
     Route: 050
     Dates: start: 20120710, end: 20180716
  3. DUODOPA [Suspect]
     Active Substance: CARBIDOPA\LEVODOPA
     Dosage: MD=3ML?CD=2.3ML/HR DURING 16HRS ?ED=0.8ML
     Route: 050
     Dates: start: 20190114, end: 20191024
  4. DUODOPA [Suspect]
     Active Substance: CARBIDOPA\LEVODOPA
     Dosage: MD=4ML, CD=2.2ML/HR DURING 16HRS, ED=0.8ML
     Route: 050
     Dates: start: 20191024, end: 20191205
  5. DUODOPA [Suspect]
     Active Substance: CARBIDOPA\LEVODOPA
     Dosage: MD=4ML, CD=2.1ML/HR DURING 16HRS, ED=0.8ML
     Route: 050
     Dates: start: 20200429, end: 20200604
  6. DUODOPA [Suspect]
     Active Substance: CARBIDOPA\LEVODOPA
     Dosage: MD=4ML?CD=2.5ML/HR DURING 16HRS ?ED=0.8ML
     Route: 050
     Dates: start: 20180716, end: 20190114
  7. DUODOPA [Suspect]
     Active Substance: CARBIDOPA\LEVODOPA
     Dosage: MD=4ML, CD=1.9ML/HR DURING 16HRS, ED=0.8ML
     Route: 050
     Dates: start: 20200604
  8. PROLOPA HBS [Concomitant]
     Active Substance: BENSERAZIDE\LEVODOPA
     Indication: PRODUCT USED FOR UNKNOWN INDICATION
     Route: 065
     Dates: start: 20200409
  9. MIRTAZAPINE. [Concomitant]
     Active Substance: MIRTAZAPINE
     Indication: PRODUCT USED FOR UNKNOWN INDICATION
  10. PROLOPA [Concomitant]
     Active Substance: BENSERAZIDE\LEVODOPA
     Indication: PARKINSON^S DISEASE
     Dosage: 200MG/50MG?FREQUENCY: 0.75 TABLET, 2 TIMES A DAY + 0.5 TABLET 2 TIMES A DAY
     Route: 048
     Dates: start: 20200409
  11. DUODOPA [Suspect]
     Active Substance: CARBIDOPA\LEVODOPA
     Indication: PARKINSON^S DISEASE
     Dosage: MD=6ML?CD=1.5ML/HR DURING 16HRS ?ED=1ML
     Route: 050
     Dates: start: 20120615, end: 20120710
  12. MOVICOL [Concomitant]
     Active Substance: POLYETHYLENE GLYCOL 3350\POTASSIUM CHLORIDE\SODIUM BICARBONATE\SODIUM CHLORIDE
     Indication: PRODUCT USED FOR UNKNOWN INDICATION
     Route: 065

REACTIONS (22)
  - Hip fracture [Unknown]
  - Muscle spasms [Not Recovered/Not Resolved]
  - Gastric ulcer [Recovered/Resolved]
  - Malaise [Unknown]
  - Freezing phenomenon [Not Recovered/Not Resolved]
  - Duodenal ulcer [Recovered/Resolved]
  - Fall [Recovered/Resolved]
  - Device occlusion [Unknown]
  - Stoma site discharge [Unknown]
  - Hepatobiliary disease [Unknown]
  - Cholecystitis [Unknown]
  - Gait disturbance [Not Recovered/Not Resolved]
  - Device physical property issue [Unknown]
  - Volvulus of small bowel [Recovered/Resolved]
  - Device dislocation [Recovered/Resolved]
  - Embedded device [Recovered/Resolved]
  - Hallucination, visual [Not Recovered/Not Resolved]
  - Stoma site erythema [Recovered/Resolved]
  - Death [Fatal]
  - Decreased appetite [Not Recovered/Not Resolved]
  - Dyskinesia [Not Recovered/Not Resolved]
  - Stoma site erythema [Not Recovered/Not Resolved]

NARRATIVE: CASE EVENT DATE: 2020
